FAERS Safety Report 4750442-X (Version None)
Quarter: 2005Q3

REPORT INFORMATION
  Report Type: 
  Country: None (occurrence: None)
  Receive Date: 20050823
  Receipt Date: 20050817
  Transmission Date: 20060218
  Serious: Yes (Death, Life-Threatening)
  Sender: FDA-Public Use
  Company Number: PHNR2005AU01247

PATIENT
  Age: 53 Year
  Sex: Male

DRUGS (2)
  1. PROTHIADEN [Concomitant]
     Route: 048
  2. ZOMETA [Suspect]
     Indication: OSTEOPOROSIS
     Dates: start: 20050311, end: 20050311

REACTIONS (1)
  - COMPLETED SUICIDE [None]
